FAERS Safety Report 24305987 (Version 1)
Quarter: 2024Q3

REPORT INFORMATION
  Report Type: Spontaneous
  Country: VN (occurrence: VN)
  Receive Date: 20240911
  Receipt Date: 20240911
  Transmission Date: 20241017
  Serious: Yes (Hospitalization, Other)
  Sender: ROCHE
  Company Number: VN-ROCHE-10000075584

PATIENT
  Age: 49 Year
  Sex: Male

DRUGS (5)
  1. RITUXIMAB [Suspect]
     Active Substance: RITUXIMAB
     Indication: Diffuse large B-cell lymphoma
     Route: 065
  2. DOXORUBICIN [Suspect]
     Active Substance: DOXORUBICIN
     Indication: Diffuse large B-cell lymphoma
     Route: 065
  3. CYCLOPHOSPHAMIDE [Suspect]
     Active Substance: CYCLOPHOSPHAMIDE
     Indication: Diffuse large B-cell lymphoma
     Route: 065
  4. VINCRISTINE [Suspect]
     Active Substance: VINCRISTINE
     Indication: Diffuse large B-cell lymphoma
     Route: 065
  5. PREDNISONE [Suspect]
     Active Substance: PREDNISONE
     Indication: Diffuse large B-cell lymphoma
     Route: 065

REACTIONS (9)
  - Abdominal neoplasm [Unknown]
  - Headache [Unknown]
  - Memory impairment [Unknown]
  - Brain oedema [Unknown]
  - Renal cyst [Unknown]
  - Fatigue [Unknown]
  - Leukopenia [Unknown]
  - Hepatic enzyme increased [Unknown]
  - Toxicity to various agents [Unknown]
